FAERS Safety Report 7458496-7 (Version None)
Quarter: 2011Q2

REPORT INFORMATION
  Report Type: 
  Country: None (occurrence: None)
  Receive Date: 20110504
  Receipt Date: 20110427
  Transmission Date: 20111010
  Serious: Yes (Other)
  Sender: FDA-Public Use
  Company Number: US-ABBOTT-11P-163-0717599-00

PATIENT
  Sex: Female
  Weight: 61.29 kg

DRUGS (33)
  1. FIORINAL W/CODEINE [Concomitant]
     Indication: MIGRAINE
     Route: 048
  2. BENTYL [Concomitant]
     Indication: ABDOMINAL PAIN UPPER
     Route: 048
  3. COLACE [Concomitant]
     Indication: CONSTIPATION
     Dosage: OTC-ALTERNATE W/SENNALAX; 3X/DAY AS NEEDED
     Route: 048
  4. HUMIRA [Suspect]
     Indication: CROHN'S DISEASE
     Route: 058
     Dates: start: 20090301
  5. BENTYL [Concomitant]
     Indication: IRRITABLE BOWEL SYNDROME
  6. TOPAMAX [Concomitant]
     Indication: HEADACHE
     Route: 048
  7. SENNA LAX [Concomitant]
     Indication: CONSTIPATION
     Dosage: OTC-ALTERNATE W/COLACE; 3X/DAY AS NEEDED
     Route: 048
  8. EFFEXOR [Suspect]
     Route: 048
     Dates: start: 20110403, end: 20110405
  9. CLONOPIN [Concomitant]
     Indication: INSOMNIA
  10. WELLBUTRIN XL [Concomitant]
     Indication: DEPRESSION
     Route: 048
  11. EFFEXOR [Suspect]
     Indication: PRODUCT USED FOR UNKNOWN INDICATION
     Route: 048
     Dates: start: 20110301, end: 20110401
  12. ZANAFLEX [Concomitant]
     Indication: INJURY
     Route: 048
  13. PHENERGAN HCL [Concomitant]
     Indication: NAUSEA
     Route: 048
  14. PHENERGAN HCL [Concomitant]
     Indication: RESTLESSNESS
  15. MYLANTA [Concomitant]
     Indication: DYSPEPSIA
     Route: 048
  16. CYSTOLIC [Concomitant]
     Indication: HYPERTENSION
  17. TRAZODONE HCL [Concomitant]
     Indication: INSOMNIA
     Dosage: AT HOUR OF SLEEP
     Route: 048
  18. INDERAL [Concomitant]
     Indication: HYPERTENSION
  19. LORTAB [Concomitant]
     Indication: ROAD TRAFFIC ACCIDENT
     Dosage: 7/500MG
     Route: 048
  20. ZOFRAN [Concomitant]
     Indication: NAUSEA
     Route: 048
  21. REGLAN [Concomitant]
     Indication: GASTRIC DISORDER
     Route: 048
  22. XANAX [Concomitant]
     Indication: ANXIETY
     Route: 048
  23. XANAX [Concomitant]
     Indication: DEPRESSION
  24. CHLORAL HYDRATE [Concomitant]
     Indication: INSOMNIA
     Route: 048
  25. VITAMIN B-12 [Concomitant]
     Indication: ANAEMIA
     Route: 058
  26. CLONOPIN [Concomitant]
     Indication: ANXIETY
     Dosage: AT HOUR OF SLEEP
     Route: 048
  27. INDERAL [Concomitant]
     Indication: HEADACHE
     Route: 048
  28. ZANAFLEX [Concomitant]
  29. RITALIN [Concomitant]
     Indication: ATTENTION DEFICIT/HYPERACTIVITY DISORDER
     Route: 048
  30. BENTYL [Concomitant]
     Indication: IMPAIRED GASTRIC EMPTYING
  31. LORTAB [Concomitant]
  32. GAS X [Concomitant]
     Indication: IMPAIRED GASTRIC EMPTYING
     Route: 048
  33. PHENERGAN HCL [Concomitant]
     Indication: INSOMNIA

REACTIONS (12)
  - TOXICITY TO VARIOUS AGENTS [None]
  - CONVULSION [None]
  - PYREXIA [None]
  - FATIGUE [None]
  - CHEST PAIN [None]
  - HYPERTENSION [None]
  - MALAISE [None]
  - HEART RATE IRREGULAR [None]
  - BLOOD POTASSIUM DECREASED [None]
  - NASOPHARYNGITIS [None]
  - DYSARTHRIA [None]
  - TREMOR [None]
